FAERS Safety Report 24055961 (Version 2)
Quarter: 2024Q4

REPORT INFORMATION
  Report Type: Report from Study
  Country: KR (occurrence: KR)
  Receive Date: 20240705
  Receipt Date: 20241018
  Transmission Date: 20250115
  Serious: Yes (Hospitalization, Other)
  Sender: ALEXION PHARMACEUTICALS
  Company Number: 2024A149698

PATIENT
  Age: 66 Year

DRUGS (28)
  1. OSIMERTINIB [Suspect]
     Active Substance: OSIMERTINIB
     Indication: Non-small cell lung cancer
     Dosage: 80 MILLIGRAM, QD
  2. OSIMERTINIB [Suspect]
     Active Substance: OSIMERTINIB
     Dosage: 80 MILLIGRAM, QD
  3. OSIMERTINIB [Suspect]
     Active Substance: OSIMERTINIB
     Dosage: 80 MILLIGRAM, QD
  4. OSIMERTINIB [Suspect]
     Active Substance: OSIMERTINIB
     Dosage: 80 MILLIGRAM, QD
  5. DULOXTA [Concomitant]
     Indication: Thrombosis
     Dosage: 30 MILLIGRAM, UNK
  6. DULOXTA [Concomitant]
     Dosage: 30 MILLIGRAM, UNK
  7. DULOXTA [Concomitant]
     Dosage: 30 MILLIGRAM, UNK
  8. DULOXTA [Concomitant]
     Dosage: 30 MILLIGRAM, UNK
  9. LYRICA [Concomitant]
     Active Substance: PREGABALIN
     Indication: Thrombosis
     Dosage: 75 MILLIGRAM, UNK
  10. LYRICA [Concomitant]
     Active Substance: PREGABALIN
     Dosage: 75 MILLIGRAM, UNK
  11. LYRICA [Concomitant]
     Active Substance: PREGABALIN
     Dosage: 75 MILLIGRAM, UNK
  12. LYRICA [Concomitant]
     Active Substance: PREGABALIN
     Dosage: 75 MILLIGRAM, UNK
  13. PENIRAMIN [Concomitant]
     Indication: Drug hypersensitivity
  14. PENIRAMIN [Concomitant]
  15. PENIRAMIN [Concomitant]
  16. PENIRAMIN [Concomitant]
  17. ACETAMINOPHEN\TRAMADOL [Concomitant]
     Active Substance: ACETAMINOPHEN\TRAMADOL
     Indication: Thrombosis
  18. ACETAMINOPHEN\TRAMADOL [Concomitant]
     Active Substance: ACETAMINOPHEN\TRAMADOL
  19. ACETAMINOPHEN\TRAMADOL [Concomitant]
     Active Substance: ACETAMINOPHEN\TRAMADOL
  20. ACETAMINOPHEN\TRAMADOL [Concomitant]
     Active Substance: ACETAMINOPHEN\TRAMADOL
  21. UBACSIN [Concomitant]
     Indication: Thrombosis
     Dosage: 1.5 GRAM, UNK
  22. UBACSIN [Concomitant]
     Dosage: 1.5 GRAM, UNK
  23. UBACSIN [Concomitant]
     Dosage: 1.5 GRAM, UNK
  24. UBACSIN [Concomitant]
     Dosage: 1.5 GRAM, UNK
  25. XARELTO [Concomitant]
     Active Substance: RIVAROXABAN
     Indication: Thrombosis
     Dosage: 20 MILLIGRAM, UNK
  26. XARELTO [Concomitant]
     Active Substance: RIVAROXABAN
     Dosage: 20 MILLIGRAM, UNK
  27. XARELTO [Concomitant]
     Active Substance: RIVAROXABAN
     Dosage: 20 MILLIGRAM, UNK
  28. XARELTO [Concomitant]
     Active Substance: RIVAROXABAN
     Dosage: 20 MILLIGRAM, UNK

REACTIONS (1)
  - Thrombosis [Recovering/Resolving]
